FAERS Safety Report 6370661-9 (Version None)
Quarter: 2009Q3

REPORT INFORMATION
  Report Type: 
  Country: None (occurrence: None)
  Receive Date: 20090923
  Receipt Date: 20070509
  Transmission Date: 20100115
  Serious: Yes (Other)
  Sender: FDA-Public Use
  Company Number: US-ASTRAZENECA-2006UW26142

PATIENT
  Age: 599 Month
  Sex: Male
  Weight: 136.1 kg

DRUGS (16)
  1. SEROQUEL [Suspect]
     Indication: HALLUCINATION, AUDITORY
     Route: 048
     Dates: start: 20050719
  2. SEROQUEL [Suspect]
     Route: 048
     Dates: end: 20050701
  3. REMERON [Concomitant]
  4. LANOXIN [Concomitant]
     Route: 048
  5. VASOTEC [Concomitant]
     Route: 048
  6. LASIX [Concomitant]
     Route: 048
  7. GLUCOTROL [Concomitant]
     Route: 048
  8. PROTONIX [Concomitant]
     Route: 048
  9. ZOCOR [Concomitant]
     Route: 048
  10. TEGRETOL [Concomitant]
     Route: 048
  11. NITRO SL [Concomitant]
     Route: 048
  12. ASPIRIN [Concomitant]
     Route: 048
  13. COUMADIN [Concomitant]
     Route: 048
  14. SOTALOL HYDROCHLORIDE [Concomitant]
     Route: 048
  15. PLAVIX [Concomitant]
     Route: 048
  16. TYLENOL (CAPLET) [Concomitant]
     Route: 048

REACTIONS (3)
  - DIABETES MELLITUS [None]
  - DIABETIC KETOACIDOSIS [None]
  - TYPE 2 DIABETES MELLITUS [None]
